FAERS Safety Report 21068922 (Version 1)
Quarter: 2022Q3

REPORT INFORMATION
  Report Type: Spontaneous
  Country: US (occurrence: US)
  Receive Date: 20220712
  Receipt Date: 20220712
  Transmission Date: 20221027
  Serious: Yes (Other)
  Sender: FDA-Public Use
  Company Number: US-SANOFI-01178779

PATIENT
  Age: 76 Year
  Sex: Male

DRUGS (3)
  1. LANTUS SOLOSTAR [Suspect]
     Active Substance: INSULIN GLARGINE
     Indication: Type 2 diabetes mellitus
     Dosage: 70 AM 1X
  2. LANTUS SOLOSTAR [Suspect]
     Active Substance: INSULIN GLARGINE
     Dosage: 50 PM 1X
  3. LUPRON [Concomitant]
     Active Substance: LEUPROLIDE ACETATE

REACTIONS (10)
  - Prostate cancer metastatic [Unknown]
  - Alopecia [Unknown]
  - Road traffic accident [Unknown]
  - Head injury [Unknown]
  - Eye injury [Unknown]
  - Memory impairment [Unknown]
  - Prostatic specific antigen increased [Unknown]
  - Balance disorder [Unknown]
  - Visual impairment [Unknown]
  - Product storage error [Unknown]

NARRATIVE: CASE EVENT DATE: 19790101
